FAERS Safety Report 4354694-X (Version None)
Quarter: 2004Q2

REPORT INFORMATION
  Report Type: 
  Country: None (occurrence: None)
  Receive Date: 20040505
  Receipt Date: 20040427
  Transmission Date: 20050107
  Serious: Yes (Hospitalization, Other)
  Sender: FDA-Public Use
  Company Number: USA-2003-0010624

PATIENT
  Age: 34 Year
  Sex: Female
  Weight: 68.5 kg

DRUGS (11)
  1. OXYCONTIN [Suspect]
     Indication: PAIN
     Dosage: SEE IMAGE
     Route: 048
  2. OXYCODONE HCL [Concomitant]
  3. BACLOFEN [Concomitant]
  4. PAMELOR [Concomitant]
  5. CELEXA [Concomitant]
  6. BENTELAN (BETAMETHASONE SODIUM PHOSPHATE) [Concomitant]
  7. PREVACID [Concomitant]
  8. LEXAPRO [Concomitant]
  9. HYOSCYAMINE (HYOSCYAMINE) [Concomitant]
  10. BENTYL [Concomitant]
  11. COMPAZINE [Concomitant]

REACTIONS (6)
  - COMA [None]
  - DRUG ABUSER [None]
  - DRUG DEPENDENCE [None]
  - MEDICATION ERROR [None]
  - OVERDOSE [None]
  - TREATMENT NONCOMPLIANCE [None]
